FAERS Safety Report 6296411-2 (Version None)
Quarter: 2009Q3

REPORT INFORMATION
  Report Type: 
  Country: None (occurrence: None)
  Receive Date: 20090804
  Receipt Date: 20090728
  Transmission Date: 20100115
  Serious: Yes (Hospitalization)
  Sender: FDA-Public Use
  Company Number: BE-TEVA-203840ISR

PATIENT
  Age: 54 Year
  Sex: Female

DRUGS (4)
  1. DICLOFENAC [Suspect]
     Indication: PAIN IN EXTREMITY
  2. TENOFOVIR DISOPROXIL FUMARATE [Interacting]
  3. KALETRA [Concomitant]
  4. LAMIVUDINE [Concomitant]

REACTIONS (3)
  - DRUG INTERACTION [None]
  - RENAL FAILURE ACUTE [None]
  - RENAL TUBULAR DISORDER [None]
